FAERS Safety Report 11218718 (Version 2)
Quarter: 2015Q3

REPORT INFORMATION
  Report Type: Other
  Country: IT (occurrence: IT)
  Receive Date: 20150625
  Receipt Date: 20150812
  Transmission Date: 20151125
  Serious: Yes (Hospitalization)
  Sender: FDA-Public Use
  Company Number: IT-MYLANLABS-2015M1020029

PATIENT

DRUGS (3)
  1. CIPROXIN                           /00697201/ [Suspect]
     Active Substance: CIPROFLOXACIN
     Indication: PROSTATITIS
     Dosage: 500 MG DAILY
     Route: 048
     Dates: start: 20141101, end: 20141105
  2. NORFLOXACIN [Suspect]
     Active Substance: NORFLOXACIN
     Indication: PROSTATITIS
     Dosage: 400 MG DAILY
     Route: 048
     Dates: start: 20141105, end: 20141108
  3. IBUPROFEN LYSINATE [Suspect]
     Active Substance: IBUPROFEN LYSINE
     Indication: INFLAMMATION
     Dosage: 2 G DAILY
     Route: 048
     Dates: start: 20141112, end: 20141115

REACTIONS (4)
  - Tubulointerstitial nephritis [Unknown]
  - Intestinal obstruction [Unknown]
  - Acute abdomen [Unknown]
  - Acute kidney injury [Unknown]

NARRATIVE: CASE EVENT DATE: 20141115
